FAERS Safety Report 9164488 (Version 1)
Quarter: 2013Q1

REPORT INFORMATION
  Report Type: Spontaneous
  Country: BR (occurrence: BR)
  Receive Date: 20130315
  Receipt Date: 20130315
  Transmission Date: 20140127
  Serious: Yes (Other)
  Sender: FDA-Public Use
  Company Number: PHHY2013BR024809

PATIENT
  Age: 70 Year
  Sex: Female

DRUGS (4)
  1. DIOVAN [Suspect]
     Indication: HYPERTENSION
     Dosage: 160 MG, DAILY
     Route: 048
  2. DIOVAN TRIPLE [Suspect]
     Indication: HYPERTENSION
     Dosage: 1 DF (160 MG VALS, 10 MG AMLO AND 12.5 MG HCT), DAILY
     Route: 048
     Dates: start: 201302
  3. INFLUENZA VACCINE [Suspect]
  4. PNEUMOCOCCAL VACCINE POLYVALENT [Suspect]

REACTIONS (4)
  - Diabetes mellitus [Recovering/Resolving]
  - Osteoporosis [Not Recovered/Not Resolved]
  - Back pain [Not Recovered/Not Resolved]
  - Dyspnoea [Recovered/Resolved]
